FAERS Safety Report 21644083 (Version 4)
Quarter: 2023Q1

REPORT INFORMATION
  Report Type: Spontaneous
  Country: US (occurrence: None)
  Receive Date: 20221125
  Receipt Date: 20230118
  Transmission Date: 20230418
  Serious: Yes (Other)
  Sender: FDA-Public Use
  Company Number: 2022A383706

PATIENT
  Age: 383 Month
  Sex: Female
  Weight: 59 kg

DRUGS (3)
  1. SYMBICORT [Suspect]
     Active Substance: BUDESONIDE\FORMOTEROL FUMARATE DIHYDRATE
     Indication: Asthma
     Dosage: 80/4.5 MCG, UNKNOWN. UNKNOWN
     Route: 055
     Dates: start: 202012
  2. SYMBICORT [Suspect]
     Active Substance: BUDESONIDE\FORMOTEROL FUMARATE DIHYDRATE
     Indication: Asthma
     Dosage: 160/4.5 MCG, UP TO 16 PUFFS DAILY
     Route: 055
     Dates: start: 202103
  3. TEZSPIRE [Suspect]
     Active Substance: TEZEPELUMAB-EKKO
     Indication: Asthma
     Route: 058
     Dates: start: 20220906

REACTIONS (11)
  - Large intestine polyp [Unknown]
  - Chest pain [Recovered/Resolved]
  - Chest discomfort [Unknown]
  - Dyspnoea [Recovered/Resolved]
  - Asthma [Not Recovered/Not Resolved]
  - Hypersensitivity [Unknown]
  - Product dose omission issue [Unknown]
  - Wrong technique in device usage process [Unknown]
  - Incorrect dose administered by device [Unknown]
  - Device use issue [Unknown]
  - Device malfunction [Unknown]

NARRATIVE: CASE EVENT DATE: 20201201
